FAERS Safety Report 7336336-4 (Version None)
Quarter: 2011Q1

REPORT INFORMATION
  Report Type: 
  Country: None (occurrence: None)
  Receive Date: 20110307
  Receipt Date: 20110224
  Transmission Date: 20110831
  Serious: Yes (Life-Threatening, Hospitalization)
  Sender: FDA-Public Use
  Company Number: FR-PFIZER INC-FR-WYE-G03509209

PATIENT
  Age: 61 Year
  Sex: Male

DRUGS (11)
  1. OFLOCET [Suspect]
     Dosage: 200 MG, ALTERNATE DAY
     Route: 042
     Dates: start: 20090211, end: 20090218
  2. CALCIDOSE [Suspect]
     Dosage: 1000 MG TOTAL DAILY
     Route: 048
     Dates: start: 20090207, end: 20090218
  3. TAZOCILLINE [Suspect]
     Dosage: 4 G, 2X/DAY
     Route: 042
     Dates: start: 20090211, end: 20090223
  4. INIPOMP [Suspect]
     Dosage: 20 MG, 1X/DAY
     Route: 048
     Dates: start: 20090208, end: 20090217
  5. DEXAMETHASONE [Concomitant]
     Route: 065
  6. ZELITREX [Suspect]
     Dosage: 500 MG, 1X/DAY
     Route: 048
     Dates: end: 20090217
  7. LYRICA [Suspect]
     Dosage: 25 MG, 2X/DAY
     Route: 048
     Dates: end: 20090218
  8. FOLIC ACID [Suspect]
     Dosage: 10 MG TOTAL DAILY
     Route: 048
     Dates: start: 20090209, end: 20090218
  9. VELCADE [Suspect]
     Dosage: 2 INJECTIONS OF 3.5MG ON 09 AND 16-FEB-2009
     Route: 042
     Dates: start: 20090209, end: 20090216
  10. LASIX [Suspect]
     Dosage: 20 MG, 1X/DAY
     Route: 048
     Dates: start: 20090211, end: 20090218
  11. CALCIPARINE [Suspect]
     Dosage: 5000 IU, 2X/DAY
     Route: 058
     Dates: start: 20090211, end: 20090217

REACTIONS (3)
  - TUMOUR LYSIS SYNDROME [None]
  - ENCEPHALOPATHY [None]
  - MYOCLONUS [None]
